FAERS Safety Report 11303141 (Version 1)
Quarter: 2015Q3

REPORT INFORMATION
  Report Type: Spontaneous
  Country: US (occurrence: US)
  Receive Date: 20150723
  Receipt Date: 20150723
  Transmission Date: 20151125
  Serious: Yes (Hospitalization)
  Sender: FDA-Public Use
  Company Number: US-PROCTER_AND_GAMBLE-CIO15043494

PATIENT
  Age: 87 Year
  Sex: Male

DRUGS (3)
  1. ZZZQUIL NIGHTTIME SLEEP-AID [Suspect]
     Active Substance: DIPHENHYDRAMINE HYDROCHLORIDE
     Dosage: ONE CAPFUL ONLY THE ONE TIME; TOOK ONE DOSE AND WENT TO BED
     Route: 048
     Dates: start: 20150706, end: 20150706
  2. UNSPECIFIED BLOOD PRESSURE MEDICATION [Concomitant]
     Active Substance: UNSPECIFIED INGREDIENT
  3. UNSPECIFIED BRONCHITIS MEDICATION [Concomitant]

REACTIONS (8)
  - Speech disorder [Recovered/Resolved]
  - Dysuria [Recovered/Resolved]
  - Abasia [Recovered/Resolved]
  - Disorientation [Recovered/Resolved]
  - Movement disorder [Recovered/Resolved]
  - Confusional state [Recovered/Resolved]
  - Labelled drug-disease interaction medication error [Unknown]
  - Fall [Recovered/Resolved]

NARRATIVE: CASE EVENT DATE: 20150706
